FAERS Safety Report 4558815-5 (Version None)
Quarter: 2005Q1

REPORT INFORMATION
  Report Type: 
  Country: None (occurrence: None)
  Receive Date: 20050121
  Receipt Date: 20050113
  Transmission Date: 20050727
  Serious: Yes (Hospitalization)
  Sender: FDA-Public Use
  Company Number: FR-GLAXOSMITHKLINE-B0364574A

PATIENT
  Age: 6 Day
  Sex: Female
  Weight: 0.9 kg

DRUGS (3)
  1. RETROVIR [Suspect]
     Indication: ANTIVIRAL PROPHYLAXIS
     Dosage: 1.5MGK TWICE PER DAY
     Route: 042
  2. TRIZIVIR [Suspect]
     Indication: HIV INFECTION
  3. VIRAMUNE [Concomitant]
     Route: 048

REACTIONS (5)
  - ANAEMIA [None]
  - ANAEMIA NEONATAL [None]
  - DRUG EXPOSURE DURING PREGNANCY [None]
  - DRUG LEVEL INCREASED [None]
  - PREMATURE BABY [None]
